FAERS Safety Report 21436614 (Version 3)
Quarter: 2022Q4

REPORT INFORMATION
  Report Type: Report from Study
  Country: DE (occurrence: DE)
  Receive Date: 20221010
  Receipt Date: 20221017
  Transmission Date: 20230113
  Serious: Yes (Hospitalization, Other)
  Sender: FDA-Public Use
  Company Number: DE-BRISTOL-MYERS SQUIBB COMPANY-2022-109703

PATIENT
  Age: 74 Year
  Sex: Male

DRUGS (1)
  1. NIVOLUMAB [Suspect]
     Active Substance: NIVOLUMAB
     Indication: Squamous cell carcinoma of head and neck
     Dosage: DATE OF LAST DOSE OF NIVOLUMAB PRIOR TO ONSET OF ADVERSE EVENT 31/AUG/2022
     Route: 041
     Dates: start: 20210427

REACTIONS (5)
  - Tumour haemorrhage [Recovered/Resolved]
  - Gastrointestinal haemorrhage [Unknown]
  - Oesophageal stenosis [Unknown]
  - Off label use [Unknown]
  - Pleural effusion [Unknown]

NARRATIVE: CASE EVENT DATE: 20220919
